FAERS Safety Report 13404321 (Version 1)
Quarter: 2017Q2

REPORT INFORMATION
  Report Type: Spontaneous
  Country: JP (occurrence: JP)
  Receive Date: 20170405
  Receipt Date: 20170405
  Transmission Date: 20170830
  Serious: Yes (Death, Life-Threatening, Hospitalization)
  Sender: FDA-Public Use
  Company Number: JP-ROCHE-1891537

PATIENT
  Age: 53 Year
  Sex: Female
  Weight: 39 kg

DRUGS (3)
  1. PACLITAXEL. [Suspect]
     Active Substance: PACLITAXEL
     Indication: CERVIX CARCINOMA
     Route: 041
     Dates: start: 20161215, end: 20170112
  2. CARBOPLATIN. [Suspect]
     Active Substance: CARBOPLATIN
     Indication: CERVIX CARCINOMA
     Route: 041
     Dates: start: 20161215, end: 20170112
  3. AVASTIN [Suspect]
     Active Substance: BEVACIZUMAB
     Indication: CERVIX CARCINOMA
     Dosage: TREATMENT LINE: 1ST LINE?TREATMENT CYCLE OF THIS MEDICINE NUMBER: 2
     Route: 041
     Dates: start: 20161215, end: 20170112

REACTIONS (6)
  - Wound infection [Unknown]
  - Intestinal perforation [Not Recovered/Not Resolved]
  - Hypertension [Unknown]
  - Cervix carcinoma [Fatal]
  - Stress cardiomyopathy [Unknown]
  - Stoma site infection [Unknown]

NARRATIVE: CASE EVENT DATE: 20170113
